FAERS Safety Report 16122856 (Version 2)
Quarter: 2019Q2

REPORT INFORMATION
  Report Type: Spontaneous
  Country: FR (occurrence: FR)
  Receive Date: 20190327
  Receipt Date: 20190411
  Transmission Date: 20190711
  Serious: Yes (Other)
  Sender: FDA-Public Use
  Company Number: FR-STALLERGENES SAS-2064738

PATIENT
  Age: 69 Year
  Sex: Female

DRUGS (7)
  1. VERATRAN [Concomitant]
     Active Substance: CLOTIAZEPAM
  2. ALPRESS [Concomitant]
     Active Substance: PRAZOSIN
  3. LEVOCETIRIZINE [Concomitant]
     Active Substance: LEVOCETIRIZINE
  4. ORALAIR [Suspect]
     Active Substance: ANTHOXANTHUM ODORATUM POLLEN\DACTYLIS GLOMERATA POLLEN\LOLIUM PERENNE POLLEN\PHLEUM PRATENSE POLLEN\POA PRATENSIS POLLEN
     Indication: CONJUNCTIVITIS
     Route: 060
     Dates: start: 20190227
  5. CALCIUM [Concomitant]
     Active Substance: CALCIUM
  6. STALORAL [Concomitant]
     Active Substance: ALLERGENIC EXTRACTS
     Route: 060
     Dates: start: 201801
  7. LISINOPRIL. [Concomitant]
     Active Substance: LISINOPRIL

REACTIONS (4)
  - Vertigo [Recovered/Resolved]
  - Syncope [Recovered/Resolved]
  - Diarrhoea [Recovered/Resolved]
  - Abdominal pain [Recovered/Resolved]

NARRATIVE: CASE EVENT DATE: 20190227
